FAERS Safety Report 25103284 (Version 1)
Quarter: 2025Q1

REPORT INFORMATION
  Report Type: Spontaneous
  Country: US (occurrence: US)
  Receive Date: 20250321
  Receipt Date: 20250321
  Transmission Date: 20250408
  Serious: Yes (Other)
  Sender: HIKMA
  Company Number: HIKM2411420

PATIENT
  Sex: Female

DRUGS (1)
  1. FLUTICASONE PROPIONATE [Suspect]
     Active Substance: FLUTICASONE PROPIONATE
     Indication: Sinus disorder
     Dosage: ONE SPRAY IN EACH NOSTRIL TWICE A DAY
     Route: 045

REACTIONS (1)
  - Cataract [Not Recovered/Not Resolved]
